FAERS Safety Report 7752094-3 (Version None)
Quarter: 2011Q3

REPORT INFORMATION
  Report Type: 
  Country: None (occurrence: None)
  Receive Date: 20110913
  Receipt Date: 20110216
  Transmission Date: 20111222
  Serious: Yes (Death)
  Sender: FDA-Public Use
  Company Number: 2011SP005394

PATIENT
  Age: 73 Year
  Sex: Female
  Weight: 73 kg

DRUGS (1)
  1. TEMODAL [Suspect]
     Indication: GLIOBLASTOMA
     Dosage: 100 MG/M2;
     Dates: start: 20090611, end: 20090726

REACTIONS (4)
  - NEOPLASM PROGRESSION [None]
  - GENERAL PHYSICAL CONDITION ABNORMAL [None]
  - ANAPLASTIC ASTROCYTOMA [None]
  - GLIOBLASTOMA [None]
